FAERS Safety Report 9702551 (Version 3)
Quarter: 2014Q1

REPORT INFORMATION
  Report Type: Spontaneous
  Country: JP (occurrence: JP)
  Receive Date: 20131121
  Receipt Date: 20140212
  Transmission Date: 20141002
  Serious: Yes (Hospitalization)
  Sender: FDA-Public Use
  Company Number: JP-TAKEDA-2013TUS002403

PATIENT
  Sex: 0

DRUGS (8)
  1. FEBURIC [Suspect]
     Indication: HYPERURICAEMIA
     Dosage: 10 MG, QD
     Route: 048
     Dates: start: 20130917, end: 20131112
  2. IMURAN /00001501/ [Interacting]
     Indication: COLLAGEN DISORDER
     Dosage: 50 MG, QD
     Route: 048
     Dates: end: 20131112
  3. LAXOBERON [Concomitant]
     Indication: CONSTIPATION
     Dosage: UNK
     Route: 048
  4. ALFAROL [Concomitant]
     Indication: OSTEOPOROSIS
     Dosage: 1.0 ?G, QD
     Route: 048
  5. PREDNISOLONE [Concomitant]
     Indication: SYSTEMIC LUPUS ERYTHEMATOSUS
     Dosage: 10 MG, QD
     Route: 048
  6. JUVELA N [Concomitant]
     Indication: PERIPHERAL VASCULAR DISORDER
     Dosage: 300 MG, QD
     Route: 048
  7. HYTHIOL [Concomitant]
     Indication: ECZEMA
     Dosage: 120 MG, QD
     Route: 048
  8. METHYCOBAL [Concomitant]
     Indication: NEUROPATHY PERIPHERAL
     Dosage: 1.0 MG, QD
     Route: 048

REACTIONS (3)
  - Drug interaction [Recovered/Resolved]
  - Anaemia [Recovered/Resolved]
  - White blood cell count decreased [Recovered/Resolved]
